FAERS Safety Report 17911143 (Version 1)
Quarter: 2020Q2

REPORT INFORMATION
  Report Type: Spontaneous
  Country: US (occurrence: US)
  Receive Date: 20200618
  Receipt Date: 20200618
  Transmission Date: 20200714
  Serious: No
  Sender: FDA-Public Use
  Company Number: NVSC2020US170755

PATIENT

DRUGS (2)
  1. VOLTAREN [Suspect]
     Active Substance: DICLOFENAC SODIUM
     Indication: ARTHRITIS
     Dosage: 1 DF
     Route: 065
     Dates: start: 20200603, end: 20200604
  2. VOLTAREN [Suspect]
     Active Substance: DICLOFENAC SODIUM
     Indication: FIBROMYALGIA

REACTIONS (4)
  - Product use in unapproved indication [Unknown]
  - Rash macular [Unknown]
  - Application site rash [Unknown]
  - Application site pain [Unknown]

NARRATIVE: CASE EVENT DATE: 20200603
